FAERS Safety Report 17989851 (Version 2)
Quarter: 2020Q3

REPORT INFORMATION
  Report Type: Spontaneous
  Country: JP (occurrence: JP)
  Receive Date: 20200707
  Receipt Date: 20200831
  Transmission Date: 20201103
  Serious: Yes (Hospitalization)
  Sender: FDA-Public Use
  Company Number: JP-OTSUKA-2020_015919

PATIENT
  Age: 51 Year
  Sex: Female

DRUGS (5)
  1. EMILACE [Concomitant]
     Indication: PRODUCT USED FOR UNKNOWN INDICATION
     Dosage: UNK
     Route: 048
     Dates: end: 20200621
  2. ETIZOLAM [Concomitant]
     Active Substance: ETIZOLAM
     Indication: PRODUCT USED FOR UNKNOWN INDICATION
     Dosage: 3 MG, QD
     Route: 048
     Dates: end: 20200621
  3. ABILIFY MAINTENA [Suspect]
     Active Substance: ARIPIPRAZOLE
     Indication: SCHIZOPHRENIA
     Dosage: 400 MG/SHOT, Q4W
     Route: 030
     Dates: end: 20200529
  4. HALCION [Concomitant]
     Active Substance: TRIAZOLAM
     Indication: PRODUCT USED FOR UNKNOWN INDICATION
     Dosage: 0.5 MG, QD
     Route: 048
     Dates: end: 20200621
  5. XEPLION [Suspect]
     Active Substance: PALIPERIDONE PALMITATE
     Indication: PRODUCT USED FOR UNKNOWN INDICATION
     Dosage: 150 MG/4W
     Route: 030
     Dates: end: 20200529

REACTIONS (1)
  - Hepatic function abnormal [Recovering/Resolving]

NARRATIVE: CASE EVENT DATE: 20200605
